FAERS Safety Report 21177980 (Version 1)
Quarter: 2022Q3

REPORT INFORMATION
  Report Type: Spontaneous
  Country: US (occurrence: None)
  Receive Date: 20220804
  Receipt Date: 20220804
  Transmission Date: 20221027
  Serious: No
  Sender: FDA-Public Use
  Company Number: None

PATIENT
  Age: 83 Year
  Sex: Female
  Weight: 67.13 kg

DRUGS (1)
  1. EVENITY [Suspect]
     Active Substance: ROMOSOZUMAB-AQQG
     Indication: Osteoporosis
     Dosage: INJECT 210MG (1 SYRINGE) SUBCUTANEOUSLY ONCE A MONTH  AS DIRECTED.?
     Route: 058
     Dates: start: 202110

REACTIONS (1)
  - Surgery [None]
